FAERS Safety Report 10029022 (Version 1)
Quarter: 2014Q1

REPORT INFORMATION
  Report Type: Spontaneous
  Country: ES (occurrence: ES)
  Receive Date: 20140321
  Receipt Date: 20140321
  Transmission Date: 20141002
  Serious: Yes (Other)
  Sender: FDA-Public Use
  Company Number: PHHY2014ES033734

PATIENT
  Age: 14 Year
  Sex: 0

DRUGS (2)
  1. IBUPROFEN [Suspect]
  2. ACETYLSALICYLIC ACID [Suspect]

REACTIONS (2)
  - Angioedema [Unknown]
  - Conjunctivitis [Unknown]
